FAERS Safety Report 23751304 (Version 1)
Quarter: 2024Q2

REPORT INFORMATION
  Report Type: Spontaneous
  Country: US (occurrence: None)
  Receive Date: 20240416
  Receipt Date: 20240416
  Transmission Date: 20240716
  Serious: No
  Sender: FDA-Public Use
  Company Number: None

PATIENT
  Age: 53 Year
  Sex: Female

DRUGS (7)
  1. COPAXONE [Suspect]
     Active Substance: GLATIRAMER ACETATE
     Indication: Multiple sclerosis
     Route: 058
     Dates: start: 20210105
  2. ASPIRIN LOW [Concomitant]
  3. PROBIOTIC CAP [Concomitant]
  4. TUMS [Concomitant]
  5. ASPIRIN [Concomitant]
     Active Substance: ASPIRIN
  6. PROBIOTICS NOS [Concomitant]
     Active Substance: PROBIOTICS NOS
  7. tums [Concomitant]

REACTIONS (1)
  - Tibia fracture [None]

NARRATIVE: CASE EVENT DATE: 20240403
